FAERS Safety Report 22055200 (Version 2)
Quarter: 2023Q1

REPORT INFORMATION
  Report Type: Spontaneous
  Country: JP (occurrence: JP)
  Receive Date: 20230302
  Receipt Date: 20230308
  Transmission Date: 20230418
  Serious: Yes (Hospitalization)
  Sender: FDA-Public Use
  Company Number: JP-BAYER-2023A025702

PATIENT
  Age: 38 Year
  Sex: Female

DRUGS (6)
  1. RIVAROXABAN [Interacting]
     Active Substance: RIVAROXABAN
     Indication: Vena cava thrombosis
     Dosage: 30MG
     Route: 048
  2. HEPARIN CALCIUM [Interacting]
     Active Substance: HEPARIN CALCIUM
     Indication: Embolism venous
     Dosage: 30000U
     Route: 058
  3. HEPARIN CALCIUM [Interacting]
     Active Substance: HEPARIN CALCIUM
     Indication: Embolism venous
     Dosage: 40000U
     Route: 058
  4. HEPARIN CALCIUM [Interacting]
     Active Substance: HEPARIN CALCIUM
     Indication: Embolism venous
     Dosage: 35000U
     Route: 058
  5. HEPARIN CALCIUM [Interacting]
     Active Substance: HEPARIN CALCIUM
     Indication: Embolism venous
     Dosage: 20000U
     Route: 058
  6. HEPARIN CALCIUM [Interacting]
     Active Substance: HEPARIN CALCIUM
     Indication: Embolism venous
     Dosage: 10000U
     Route: 058

REACTIONS (3)
  - Uterine haemorrhage [Unknown]
  - Labelled drug-drug interaction medication error [Unknown]
  - Maternal exposure during breast feeding [Unknown]
